FAERS Safety Report 9498432 (Version 1)
Quarter: 2013Q3

REPORT INFORMATION
  Report Type: Spontaneous
  Country: FR (occurrence: FR)
  Receive Date: 20130904
  Receipt Date: 20130904
  Transmission Date: 20140515
  Serious: Yes (Hospitalization)
  Sender: FDA-Public Use
  Company Number: FR-GLAXOSMITHKLINE-B0916698A

PATIENT
  Age: 92 Year
  Sex: Male

DRUGS (5)
  1. ARIXTRA [Suspect]
     Indication: PHLEBITIS
     Dosage: 7.5MG PER DAY
     Route: 058
     Dates: start: 20130610, end: 20130702
  2. PAROXETINE [Concomitant]
  3. SINEMET [Concomitant]
  4. DISULONE [Concomitant]
  5. OMEPRAZOL [Concomitant]

REACTIONS (3)
  - Anaemia [Recovered/Resolved]
  - Muscle haemorrhage [Recovered/Resolved]
  - Prescribed overdose [Unknown]
